FAERS Safety Report 8353846-1 (Version None)
Quarter: 2012Q2

REPORT INFORMATION
  Report Type: 
  Country: None (occurrence: None)
  Receive Date: 20120511
  Receipt Date: 20120109
  Transmission Date: 20120825
  Serious: No
  Sender: FDA-Public Use
  Company Number: US-GLAXOSMITHKLINE-A0960593A

PATIENT
  Age: 55 Year
  Sex: Female

DRUGS (5)
  1. TYKERB [Suspect]
     Indication: BREAST CANCER
     Dosage: 3TAB PER DAY
     Route: 048
     Dates: start: 20111201, end: 20111201
  2. TYKERB [Suspect]
     Dosage: 1250MG PER DAY
     Route: 065
     Dates: start: 20120103
  3. ANTI-NAUSEA DRUGS [Concomitant]
  4. XELODA [Concomitant]
  5. IMODIUM [Concomitant]

REACTIONS (4)
  - DIARRHOEA [None]
  - VOMITING [None]
  - ADVERSE DRUG REACTION [None]
  - NAUSEA [None]
